FAERS Safety Report 12386709 (Version 2)
Quarter: 2016Q2

REPORT INFORMATION
  Report Type: Spontaneous
  Country: US (occurrence: US)
  Receive Date: 20160519
  Receipt Date: 20160606
  Transmission Date: 20160815
  Serious: Yes (Other)
  Sender: FDA-Public Use
  Company Number: US-BAXALTA-2016BLT003428

PATIENT
  Age: 2 Year
  Sex: Male
  Weight: 13.2 kg

DRUGS (3)
  1. ADVATE [Suspect]
     Active Substance: ANTIHEMOPHILIC FACTOR, HUMAN RECOMBINANT
     Indication: PENILE REPAIR
     Dosage: 792 IU, ONCE
     Route: 040
     Dates: start: 20160301, end: 20160301
  2. ADVATE [Suspect]
     Active Substance: ANTIHEMOPHILIC FACTOR, HUMAN RECOMBINANT
     Indication: FACTOR VIII DEFICIENCY
     Dosage: UNK
     Route: 042
     Dates: start: 201503
  3. ADVATE [Suspect]
     Active Substance: ANTIHEMOPHILIC FACTOR, HUMAN RECOMBINANT
     Indication: CIRCUMCISION
     Dosage: 792 IU, AS NEEDED
     Route: 040
     Dates: start: 201603

REACTIONS (1)
  - Inhibiting antibodies [Recovering/Resolving]

NARRATIVE: CASE EVENT DATE: 20160331
